FAERS Safety Report 6939380-1 (Version None)
Quarter: 2010Q3

REPORT INFORMATION
  Report Type: 
  Country: None (occurrence: None)
  Receive Date: 20100819
  Receipt Date: 20100806
  Transmission Date: 20110219
  Serious: Yes (Hospitalization)
  Sender: FDA-Public Use
  Company Number: CLOF-1000551

PATIENT
  Age: 70 Year
  Sex: Male
  Weight: 89.2 kg

DRUGS (4)
  1. CLOFARABINE OR PLACEBO (CODE NOT BROKEN) [Suspect]
     Indication: ACUTE MYELOID LEUKAEMIA
     Dates: start: 20090417, end: 20090421
  2. CLOFARABINE OR PLACEBO (CODE NOT BROKEN) [Suspect]
     Indication: ACUTE MYELOID LEUKAEMIA
     Dates: start: 20090602, end: 20090605
  3. CYTARABINE [Suspect]
     Indication: ACUTE MYELOID LEUKAEMIA
     Dosage: 1 G/M2, QDX5, INTRAVENOUS, 1 G/M2, 4 DAYS, INTRAVENOUS
     Route: 042
     Dates: start: 20090417, end: 20090421
  4. CYTARABINE [Suspect]
     Indication: ACUTE MYELOID LEUKAEMIA
     Dosage: 1 G/M2, QDX5, INTRAVENOUS, 1 G/M2, 4 DAYS, INTRAVENOUS
     Route: 042
     Dates: start: 20090602, end: 20090605

REACTIONS (2)
  - HYPOXIA [None]
  - LUNG INFILTRATION [None]
